FAERS Safety Report 5939840-6 (Version None)
Quarter: 2008Q4

REPORT INFORMATION
  Report Type: 
  Country: None (occurrence: None)
  Receive Date: 20081030
  Receipt Date: 20081030
  Transmission Date: 20090506
  Serious: Yes (Other)
  Sender: FDA-Public Use
  Company Number: None

PATIENT
  Age: 31 Year
  Sex: Male
  Weight: 76.2043 kg

DRUGS (1)
  1. ZYRTEC [Suspect]
     Indication: SEASONAL ALLERGY
     Dosage: 1 PILL 1 PER DAY
     Dates: start: 20080701, end: 20080801

REACTIONS (10)
  - ACTIVITIES OF DAILY LIVING IMPAIRED [None]
  - DISTURBANCE IN ATTENTION [None]
  - DRUG WITHDRAWAL SYNDROME [None]
  - HYPERAESTHESIA [None]
  - IMPAIRED DRIVING ABILITY [None]
  - PRURITUS GENERALISED [None]
  - RASH PRURITIC [None]
  - SWELLING [None]
  - TEMPERATURE INTOLERANCE [None]
  - URTICARIA [None]
